FAERS Safety Report 10517573 (Version 6)
Quarter: 2017Q3

REPORT INFORMATION
  Report Type: Spontaneous
  Country: JP (occurrence: JP)
  Receive Date: 20141014
  Receipt Date: 20170801
  Transmission Date: 20171127
  Serious: Yes (Hospitalization)
  Sender: FDA-Public Use
  Company Number: PHHY2014JP102849

PATIENT
  Age: 44 Year
  Sex: Male
  Weight: 67 kg

DRUGS (25)
  1. ALOSITOL [Concomitant]
     Active Substance: ALLOPURINOL
     Indication: HYPERURICAEMIA
     Dosage: 100 MG, TID
     Route: 048
     Dates: start: 20140507, end: 20140527
  2. ADONA [Concomitant]
     Active Substance: CARBAZOCHROME SODIUM SULFONATE
     Indication: COAGULOPATHY
     Dosage: 100 MG, QD
     Route: 065
     Dates: start: 20140507, end: 20140522
  3. PREDNISOLONE. [Concomitant]
     Active Substance: PREDNISOLONE
     Indication: ACQUIRED HAEMOPHILIA
  4. TRANSAMIN [Concomitant]
     Active Substance: TRANEXAMIC ACID
     Indication: ACQUIRED HAEMOPHILIA
  5. TASIGNA [Suspect]
     Active Substance: NILOTINIB
     Dosage: 150 MG, QD
     Route: 048
     Dates: start: 20140626, end: 20140721
  6. HYDREA [Concomitant]
     Active Substance: HYDROXYUREA
     Indication: LESION EXCISION
     Dosage: 1000 MG, QD
     Route: 048
     Dates: start: 20140502, end: 20140502
  7. ADONA [Concomitant]
     Active Substance: CARBAZOCHROME SODIUM SULFONATE
     Indication: ACQUIRED HAEMOPHILIA
  8. NOVOSEVEN [Concomitant]
     Active Substance: COAGULATION FACTOR VIIA RECOMBINANT HUMAN
     Indication: COAGULOPATHY
     Dosage: 7 MG, TID
     Route: 065
     Dates: start: 20140509
  9. NOVOSEVEN [Concomitant]
     Active Substance: COAGULATION FACTOR VIIA RECOMBINANT HUMAN
     Indication: ACQUIRED HAEMOPHILIA
     Dosage: 5 MG, TID
     Route: 065
     Dates: start: 20140510
  10. TRANSAMIN [Concomitant]
     Active Substance: TRANEXAMIC ACID
     Indication: COAGULOPATHY
     Dosage: 2000 MG, QD
     Route: 005
     Dates: start: 20140514, end: 20140522
  11. TASIGNA [Suspect]
     Active Substance: NILOTINIB
     Dosage: 150 MG, QW3
     Route: 048
     Dates: start: 20140722, end: 20140801
  12. CALONAL [Concomitant]
     Active Substance: ACETAMINOPHEN
     Indication: BACK PAIN
     Dosage: 400 MG, UNK
     Route: 048
     Dates: start: 20140426
  13. AVELOX [Concomitant]
     Active Substance: MOXIFLOXACIN HYDROCHLORIDE
     Indication: PYREXIA
     Dosage: 400 MG, UNK
     Route: 048
     Dates: start: 20140426, end: 20140502
  14. LOXONIN [Concomitant]
     Active Substance: LOXOPROFEN SODIUM
     Indication: BACK PAIN
     Dosage: 60 MG, PRN
     Route: 048
     Dates: start: 20140502
  15. NOVOSEVEN [Concomitant]
     Active Substance: COAGULATION FACTOR VIIA RECOMBINANT HUMAN
     Dosage: 5 MG, TID
     Route: 065
     Dates: start: 20140511
  16. DESMOPRESSIN [Concomitant]
     Active Substance: DESMOPRESSIN
     Indication: COAGULOPATHY
     Dosage: UNK
     Route: 065
     Dates: start: 20140513
  17. DEPAS [Concomitant]
     Active Substance: ETIZOLAM
     Indication: INSOMNIA
     Dosage: 1 MG, UNK
     Route: 048
     Dates: start: 20140502
  18. LASIX [Concomitant]
     Active Substance: FUROSEMIDE
     Indication: PLEURAL EFFUSION
     Dosage: 20 MG, UNK
     Route: 048
     Dates: start: 20140504, end: 20140526
  19. ALDACTONE A [Concomitant]
     Active Substance: SPIRONOLACTONE
     Indication: PRODUCT USED FOR UNKNOWN INDICATION
     Route: 048
  20. DESMOPRESSIN [Concomitant]
     Active Substance: DESMOPRESSIN
     Indication: ACQUIRED HAEMOPHILIA
  21. TASIGNA [Suspect]
     Active Substance: NILOTINIB
     Indication: CHRONIC MYELOID LEUKAEMIA
     Dosage: 600 MG, QD
     Route: 048
     Dates: start: 20140502, end: 20140602
  22. TASIGNA [Suspect]
     Active Substance: NILOTINIB
     Dosage: 150 MG, QW3
     Route: 048
     Dates: start: 20140917
  23. AVELOX [Concomitant]
     Active Substance: MOXIFLOXACIN HYDROCHLORIDE
     Indication: INFECTION
  24. PREDNISOLONE. [Concomitant]
     Active Substance: PREDNISOLONE
     Indication: COAGULOPATHY
     Dosage: 80 MG, QD
     Route: 065
     Dates: start: 20140508, end: 20140512
  25. TASIGNA [Suspect]
     Active Substance: NILOTINIB
     Dosage: 150 MG, QD
     Route: 048
     Dates: start: 201507

REACTIONS (5)
  - Rhabdomyolysis [Recovered/Resolved]
  - Thrombocytopenia [Not Recovered/Not Resolved]
  - Malaise [Unknown]
  - Hypophosphataemia [Recovered/Resolved]
  - Myalgia [Unknown]

NARRATIVE: CASE EVENT DATE: 20140504
